FAERS Safety Report 5996704-X (Version None)
Quarter: 2008Q4

REPORT INFORMATION
  Report Type: 
  Country: None (occurrence: None)
  Receive Date: 20081212
  Receipt Date: 20081023
  Transmission Date: 20090506
  Serious: No
  Sender: FDA-Public Use
  Company Number: US-ABBOTT-08P-163-0483458-00

PATIENT
  Sex: Male
  Weight: 88 kg

DRUGS (2)
  1. HUMIRA [Suspect]
     Indication: PSORIASIS
     Route: 058
     Dates: start: 20081013
  2. HUMIRA [Suspect]
     Route: 058
     Dates: start: 20081020, end: 20081020

REACTIONS (3)
  - DARK CIRCLES UNDER EYES [None]
  - DYSPNOEA [None]
  - NON-CARDIAC CHEST PAIN [None]
